FAERS Safety Report 7602657-0 (Version None)
Quarter: 2011Q3

REPORT INFORMATION
  Report Type: 
  Country: None (occurrence: None)
  Receive Date: 20110712
  Receipt Date: 20110630
  Transmission Date: 20111222
  Serious: Yes (Hospitalization, Other)
  Sender: FDA-Public Use
  Company Number: CA-ELI_LILLY_AND_COMPANY-CA201106009036

PATIENT
  Sex: Male

DRUGS (4)
  1. ZYPREXA [Suspect]
     Indication: SCHIZOPHRENIA, PARANOID TYPE
     Dosage: 10 MG, EACH EVENING
     Dates: start: 19980814, end: 20060119
  2. SEROQUEL [Concomitant]
  3. ZYPREXA [Suspect]
     Dosage: 15 MG, EACH EVENING
  4. ZYPREXA [Suspect]
     Dosage: 20 MG, EACH EVENING

REACTIONS (5)
  - ARTERIOSCLEROSIS CORONARY ARTERY [None]
  - CORONARY ARTERY OCCLUSION [None]
  - HYPERLIPIDAEMIA [None]
  - ACUTE MYOCARDIAL INFARCTION [None]
  - DIABETES MELLITUS [None]
